FAERS Safety Report 24802717 (Version 4)
Quarter: 2025Q1

REPORT INFORMATION
  Report Type: Spontaneous
  Country: IN (occurrence: IN)
  Receive Date: 20250103
  Receipt Date: 20250210
  Transmission Date: 20250408
  Serious: Yes (Other)
  Sender: PFIZER
  Company Number: IN-PFIZER INC-PV202400129769

PATIENT
  Age: 46 Year
  Sex: Male
  Weight: 59 kg

DRUGS (1)
  1. CIBINQO [Suspect]
     Active Substance: ABROCITINIB
     Dosage: 200 MG, 1X/DAY
     Route: 048

REACTIONS (17)
  - Condition aggravated [Not Recovered/Not Resolved]
  - Insomnia [Not Recovered/Not Resolved]
  - Erythema [Not Recovered/Not Resolved]
  - Pruritus [Not Recovered/Not Resolved]
  - Pain [Not Recovered/Not Resolved]
  - Myalgia [Unknown]
  - Pyrexia [Unknown]
  - Muscle spasms [Unknown]
  - Fatigue [Unknown]
  - Hyperhidrosis [Unknown]
  - Acne [Unknown]
  - Abdominal distension [Unknown]
  - Dyspnoea [Unknown]
  - Rash [Unknown]
  - Dysaesthesia [Unknown]
  - Depressed mood [Unknown]
  - Amnesia [Unknown]

NARRATIVE: CASE EVENT DATE: 20241007
